FAERS Safety Report 26067101 (Version 1)
Quarter: 2025Q4

REPORT INFORMATION
  Report Type: Spontaneous
  Country: US (occurrence: US)
  Receive Date: 20251119
  Receipt Date: 20251119
  Transmission Date: 20260117
  Serious: No
  Sender: SANOFI AVENTIS
  Company Number: US-SA-2025SA343232

PATIENT
  Sex: Male
  Weight: 71.64 kg

DRUGS (2)
  1. KEVZARA [Suspect]
     Active Substance: SARILUMAB
     Indication: Rheumatoid arthritis
     Dosage: 200 MG, QOW
     Route: 058
  2. PREDNISONE [Concomitant]
     Active Substance: PREDNISONE
     Dosage: UNK

REACTIONS (7)
  - Joint swelling [Not Recovered/Not Resolved]
  - Mobility decreased [Unknown]
  - Pain [Unknown]
  - Cough [Unknown]
  - Headache [Unknown]
  - Nasopharyngitis [Unknown]
  - Drug ineffective [Unknown]
